FAERS Safety Report 15982899 (Version 2)
Quarter: 2019Q1

REPORT INFORMATION
  Report Type: Report from Study
  Country: BD (occurrence: BD)
  Receive Date: 20190219
  Receipt Date: 20190222
  Transmission Date: 20190418
  Serious: Yes (Death)
  Sender: FDA-Public Use
  Company Number: PHHY2019BD038758

PATIENT
  Age: 68 Year
  Sex: Female
  Weight: 65 kg

DRUGS (1)
  1. SANDIMMUN NEORAL [Suspect]
     Active Substance: CYCLOSPORINE
     Indication: APLASTIC ANAEMIA
     Dosage: UNK UNK, BID
     Route: 065
     Dates: start: 20190117, end: 20190205

REACTIONS (4)
  - White blood cell count decreased [Fatal]
  - Platelet count decreased [Fatal]
  - Red blood cell count decreased [Fatal]
  - Product use in unapproved indication [Unknown]
